FAERS Safety Report 20129096 (Version 2)
Quarter: 2021Q4

REPORT INFORMATION
  Report Type: Spontaneous
  Country: US (occurrence: US)
  Receive Date: 20211130
  Receipt Date: 20211217
  Transmission Date: 20220303
  Serious: No
  Sender: FDA-Public Use
  Company Number: US-BRISTOL-MYERS SQUIBB COMPANY-BMS-2021-127167

PATIENT
  Age: 64 Year
  Sex: Female

DRUGS (2)
  1. SPRYCEL [Suspect]
     Active Substance: DASATINIB
     Indication: Chronic myeloid leukaemia
     Dosage: 1 TAB, QD
     Route: 048
     Dates: start: 20211025, end: 20211124
  2. SPRYCEL [Suspect]
     Active Substance: DASATINIB
     Dosage: 100 MILLIGRAM, QD
     Route: 048
     Dates: start: 202111

REACTIONS (9)
  - Nausea [Unknown]
  - Abdominal discomfort [Unknown]
  - Diarrhoea [Unknown]
  - Rash [Recovering/Resolving]
  - Hypersensitivity [Unknown]
  - Ear infection [Unknown]
  - Pain [Unknown]
  - Amnesia [Unknown]
  - Tooth disorder [Unknown]

NARRATIVE: CASE EVENT DATE: 20211201
